FAERS Safety Report 21370025 (Version 1)
Quarter: 2022Q3

REPORT INFORMATION
  Report Type: Spontaneous
  Country: US (occurrence: US)
  Receive Date: 20220923
  Receipt Date: 20220923
  Transmission Date: 20221026
  Serious: No
  Sender: FDA-Public Use
  Company Number: US-BRISTOL-MYERS SQUIBB COMPANY-2022-109892

PATIENT
  Age: 77 Year
  Sex: Female

DRUGS (1)
  1. IDHIFA [Suspect]
     Active Substance: ENASIDENIB MESYLATE
     Indication: Product used for unknown indication
     Dosage: FREQUENCY:1 TABLET BY MOUTH DAILY.
     Route: 048

REACTIONS (1)
  - Liver disorder [Unknown]
